FAERS Safety Report 20051125 (Version 3)
Quarter: 2021Q4

REPORT INFORMATION
  Report Type: Report from Study
  Country: NL (occurrence: NL)
  Receive Date: 20211110
  Receipt Date: 20211118
  Transmission Date: 20220303
  Serious: Yes (Hospitalization, Other)
  Sender: FDA-Public Use
  Company Number: NL-ABBVIE-21K-114-4153709-00

PATIENT
  Sex: Male

DRUGS (11)
  1. VENETOCLAX [Suspect]
     Active Substance: VENETOCLAX
     Indication: Acute myeloid leukaemia
     Route: 048
     Dates: start: 20201216, end: 20210426
  2. VORICONAZOLE [Suspect]
     Active Substance: VORICONAZOLE
     Indication: Product used for unknown indication
     Route: 065
  3. DECITABINE [Suspect]
     Active Substance: DECITABINE
     Indication: Product used for unknown indication
     Route: 065
     Dates: start: 20200525, end: 2020
  4. DECITABINE [Suspect]
     Active Substance: DECITABINE
     Route: 065
     Dates: start: 2020, end: 2020
  5. DECITABINE [Suspect]
     Active Substance: DECITABINE
     Route: 065
     Dates: start: 2020, end: 2020
  6. DECITABINE [Suspect]
     Active Substance: DECITABINE
     Dosage: DAY 1 TO 5 OF RAMP UP
     Route: 065
     Dates: start: 20201216
  7. VALACYCLOVIR HYDROCHLORIDE [Concomitant]
     Active Substance: VALACYCLOVIR HYDROCHLORIDE
     Indication: Pneumocystis jirovecii infection
     Route: 048
     Dates: start: 20200820
  8. POSACONAZOLE [Concomitant]
     Active Substance: POSACONAZOLE
     Indication: Antifungal prophylaxis
     Route: 048
     Dates: start: 20201213, end: 20210615
  9. COTRIMOXAZOLE [Concomitant]
     Active Substance: SULFAMETHOXAZOLE\TRIMETHOPRIM
     Indication: Pneumocystis jirovecii infection
     Route: 048
     Dates: start: 20200820
  10. CARBASPIRIN CALCIUM [Concomitant]
     Active Substance: CARBASPIRIN CALCIUM
     Indication: Cardiovascular disorder
     Route: 048
     Dates: start: 20200820, end: 20210922
  11. GEMTUZUMAB OZOGAMICIN [Concomitant]
     Active Substance: GEMTUZUMAB OZOGAMICIN
     Indication: Product used for unknown indication
     Dosage: 2 TIMES

REACTIONS (6)
  - Pancytopenia [Recovering/Resolving]
  - Thrombocytopenia [Recovering/Resolving]
  - Acute graft versus host disease [Recovered/Resolved]
  - Donor leukocyte infusion [Unknown]
  - Pyrexia [Unknown]
  - Off label use [Recovered/Resolved]

NARRATIVE: CASE EVENT DATE: 20201216
